FAERS Safety Report 6300850-0 (Version None)
Quarter: 2009Q3

REPORT INFORMATION
  Report Type: 
  Country: None (occurrence: None)
  Receive Date: 20090807
  Receipt Date: 20090728
  Transmission Date: 20100115
  Serious: Yes (Death, Other)
  Sender: FDA-Public Use
  Company Number: JP-PFIZER INC-2009248555

PATIENT

DRUGS (1)
  1. HALCION [Suspect]

REACTIONS (2)
  - DEATH [None]
  - OVERDOSE [None]
